FAERS Safety Report 11914691 (Version 1)
Quarter: 2016Q1

REPORT INFORMATION
  Report Type: Report from Study
  Country: US (occurrence: US)
  Receive Date: 20160113
  Receipt Date: 20160113
  Transmission Date: 20160526
  Serious: Yes (Other)
  Sender: FDA-Public Use
  Company Number: PHEH2016US001003

PATIENT
  Age: 61 Year
  Sex: Female
  Weight: 72.56 kg

DRUGS (1)
  1. EXTAVIA [Suspect]
     Active Substance: INTERFERON BETA-1B
     Indication: MULTIPLE SCLEROSIS
     Dosage: 0.25 ML, QOD (0.0625 MG)
     Route: 058
     Dates: start: 20160109, end: 20160110

REACTIONS (5)
  - Seizure [Unknown]
  - Tremor [Unknown]
  - Dysstasia [Unknown]
  - Spinal pain [Unknown]
  - Drug intolerance [Unknown]

NARRATIVE: CASE EVENT DATE: 20160109
